FAERS Safety Report 9246517 (Version 1)
Quarter: 2013Q2

REPORT INFORMATION
  Report Type: Spontaneous
  Country: US (occurrence: US)
  Receive Date: 20130422
  Receipt Date: 20130422
  Transmission Date: 20140414
  Serious: Yes (Other)
  Sender: FDA-Public Use
  Company Number: US-BAYER-2013-047613

PATIENT
  Age: 86 Year
  Sex: Female
  Weight: 47.17 kg

DRUGS (3)
  1. BAYER ASPIRIN REGIMEN ADULT LOW STRENGTH [Suspect]
     Dosage: 1 DF, QD
     Route: 048
     Dates: start: 1998
  2. LOPRESSOR [Concomitant]
  3. VITAMINS [Concomitant]

REACTIONS (1)
  - Macular degeneration [Not Recovered/Not Resolved]
